FAERS Safety Report 6279908-0 (Version None)
Quarter: 2009Q3

REPORT INFORMATION
  Report Type: 
  Country: None (occurrence: None)
  Receive Date: 20090723
  Receipt Date: 20090529
  Transmission Date: 20100115
  Serious: No
  Sender: FDA-Public Use
  Company Number: US-AMGEN-KDL349503

PATIENT
  Sex: Female
  Weight: 52.7 kg

DRUGS (9)
  1. PROCRIT [Suspect]
     Indication: HEPATITIS B
     Route: 058
     Dates: start: 20090101
  2. INFERGEN [Concomitant]
     Route: 058
     Dates: start: 20080101
  3. RIBAVIRIN [Concomitant]
     Dates: start: 20080101
  4. PREVACID [Concomitant]
  5. ESTRADIOL [Concomitant]
     Route: 048
  6. SYNTHROID [Concomitant]
     Route: 048
  7. ZOLPIDEM [Concomitant]
     Route: 048
  8. LEXAPRO [Concomitant]
     Route: 048
  9. LODINE [Concomitant]
     Route: 048

REACTIONS (8)
  - ALOPECIA [None]
  - INJECTION SITE ERYTHEMA [None]
  - INJECTION SITE HAEMATOMA [None]
  - INJECTION SITE MACULE [None]
  - INJECTION SITE URTICARIA [None]
  - NAUSEA [None]
  - RASH [None]
  - WEIGHT DECREASED [None]
